FAERS Safety Report 20384603 (Version 1)
Quarter: 2022Q1

REPORT INFORMATION
  Report Type: Spontaneous
  Country: CN (occurrence: CN)
  Receive Date: 20220127
  Receipt Date: 20220127
  Transmission Date: 20220423
  Serious: Yes (Other)
  Sender: FDA-Public Use
  Company Number: CN-009507513-2201CHN005709

PATIENT
  Age: 58 Year
  Sex: Male

DRUGS (2)
  1. CILASTATIN SODIUM\IMIPENEM [Suspect]
     Active Substance: CILASTATIN SODIUM\IMIPENEM
     Indication: Pneumonia
     Dosage: 2 GRAM, Q8H
     Route: 041
     Dates: start: 20220108, end: 202201
  2. CILASTATIN SODIUM\IMIPENEM [Suspect]
     Active Substance: CILASTATIN SODIUM\IMIPENEM
     Indication: Anti-infective therapy
     Dosage: DOSE REDUCED TO 1 GRAM, Q6H
     Route: 041
     Dates: start: 20220109, end: 20220112

REACTIONS (2)
  - Epilepsy [Recovered/Resolved]
  - Overdose [Unknown]

NARRATIVE: CASE EVENT DATE: 20220108
